FAERS Safety Report 15269085 (Version 1)
Quarter: 2018Q4

REPORT INFORMATION
  Report Type: Spontaneous
  Country: US (occurrence: US)
  Receive Date: 20180813
  Receipt Date: 20180813
  Transmission Date: 20190204
  Serious: Yes (Hospitalization, Other)
  Sender: FDA-Public Use
  Company Number: US-ZYDUS-021139

PATIENT
  Age: 27 Year
  Sex: Male

DRUGS (6)
  1. BUPRENORPHINE/NALOXONE [Interacting]
     Active Substance: BUPRENORPHINE\NALOXONE
     Indication: SEDATION
     Route: 065
  2. GABAPENTIN. [Interacting]
     Active Substance: GABAPENTIN
     Indication: PRODUCT USED FOR UNKNOWN INDICATION
     Route: 065
  3. BUPRENORPHINE/NALOXONE [Interacting]
     Active Substance: BUPRENORPHINE\NALOXONE
     Indication: EUPHORIC MOOD
     Route: 065
  4. BUPRENORPHINE/NALOXONE [Interacting]
     Active Substance: BUPRENORPHINE\NALOXONE
     Indication: PRODUCT USED FOR UNKNOWN INDICATION
     Route: 065
  5. GABAPENTIN. [Suspect]
     Active Substance: GABAPENTIN
     Indication: PRODUCT USED FOR UNKNOWN INDICATION
     Route: 065
  6. BUPRENORPHINE. [Concomitant]
     Active Substance: BUPRENORPHINE
     Indication: PRODUCT USED FOR UNKNOWN INDICATION
     Route: 065

REACTIONS (3)
  - Depressed level of consciousness [Unknown]
  - Drug abuse [Unknown]
  - Drug interaction [Unknown]
